FAERS Safety Report 7043969-1 (Version None)
Quarter: 2010Q4

REPORT INFORMATION
  Report Type: 
  Country: None (occurrence: None)
  Receive Date: 20101008
  Receipt Date: 20101008
  Transmission Date: 20110411
  Serious: Yes (Other)
  Sender: FDA-Public Use
  Company Number: None

PATIENT
  Age: 57 Year
  Sex: Male
  Weight: 65 kg

DRUGS (22)
  1. NAFCILLIN [Suspect]
     Indication: ABSCESS
     Dosage: 10,000MG 24HR DRIP IV
     Route: 042
     Dates: start: 20100823, end: 20100907
  2. NAFCILLIN [Suspect]
     Indication: STAPHYLOCOCCAL INFECTION
     Dosage: 10,000MG 24HR DRIP IV
     Route: 042
     Dates: start: 20100823, end: 20100907
  3. CARVEDILOL [Concomitant]
  4. AMLODIPINE [Concomitant]
  5. BISACODYL [Concomitant]
  6. CALCIUM ACETATE [Concomitant]
  7. DARBEPOEITIN ALFA [Concomitant]
  8. DOCUSATE SODIUM [Concomitant]
  9. FERROUS SULFATE [Concomitant]
  10. HEPARIN SODIUM [Concomitant]
  11. ISOSORBIDE DINITRATE [Concomitant]
  12. OMEPRAZOLE [Concomitant]
  13. SEVELAMER [Concomitant]
  14. SIMVASTATIN [Concomitant]
  15. VITAMIN B COMPLEX CAP [Concomitant]
  16. ACETAMINOPHEN [Concomitant]
  17. INSULIN LISPRO [Concomitant]
  18. ONDANSETRON [Concomitant]
  19. OXYCODONE HCL [Concomitant]
  20. PROCHLORPERAZINE [Concomitant]
  21. VANCOMYCIN [Concomitant]
  22. CEFAZOLIN [Concomitant]

REACTIONS (2)
  - LEUKOCYTOCLASTIC VASCULITIS [None]
  - PETECHIAE [None]
